FAERS Safety Report 20616126 (Version 1)
Quarter: 2022Q1

REPORT INFORMATION
  Report Type: Spontaneous
  Country: US (occurrence: None)
  Receive Date: 20220320
  Receipt Date: 20220320
  Transmission Date: 20220423
  Serious: Yes (Other)
  Sender: FDA-Public Use
  Company Number: None

PATIENT
  Age: 49 Year
  Sex: Female
  Weight: 74.25 kg

DRUGS (3)
  1. HYDROXYCHLOROQUINE [Suspect]
     Active Substance: HYDROXYCHLOROQUINE
     Indication: Polychondritis
     Dosage: 1 TABLET
     Route: 048
  2. Clonazepam 1mg 1x/day [Concomitant]
  3. Chelated magnesium 800 mg 1x/day [Concomitant]

REACTIONS (1)
  - Cataract [None]

NARRATIVE: CASE EVENT DATE: 20220318
